FAERS Safety Report 12681286 (Version 1)
Quarter: 2016Q3

REPORT INFORMATION
  Report Type: Report from Study
  Country: US (occurrence: US)
  Receive Date: 20160824
  Receipt Date: 20160824
  Transmission Date: 20161109
  Serious: Yes (Hospitalization)
  Sender: FDA-Public Use
  Company Number: PHHO2011US17261

PATIENT
  Age: 70 Year
  Sex: Female
  Weight: 69.84 kg

DRUGS (26)
  1. COMPARATOR TRASTUZUMAB [Suspect]
     Active Substance: TRASTUZUMAB
     Indication: BREAST CANCER METASTATIC
     Dosage: 140 MG, QW
     Route: 042
     Dates: start: 20110817, end: 20111005
  2. COMPAZINE [Concomitant]
     Active Substance: PROCHLORPERAZINE MALEATE
     Indication: NAUSEA
     Dosage: 10 MG, PRN
     Route: 048
     Dates: start: 20110610
  3. TYLENOL [Concomitant]
     Active Substance: ACETAMINOPHEN
     Indication: INSOMNIA
     Dosage: 2 DF, PRN
     Dates: start: 2009
  4. COMPARATOR VINORELBINE [Suspect]
     Active Substance: VINORELBINE TARTRATE
     Dosage: 33 MG, QW
     Route: 042
     Dates: start: 20111102
  5. NYSTATIN. [Concomitant]
     Active Substance: NYSTATIN
     Dosage: UNK
     Dates: start: 20110921
  6. ABREVA [Concomitant]
     Active Substance: DOCOSANOL
     Dosage: UNK
     Dates: start: 20110824
  7. ZINC [Concomitant]
     Active Substance: ZINC\ZINC CHLORIDE
     Dosage: UNK
     Dates: start: 20110928
  8. XANAX [Concomitant]
     Active Substance: ALPRAZOLAM
     Indication: ANXIETY
     Dosage: 0.25 MG, QD
     Route: 048
     Dates: start: 20110610
  9. AFINITOR [Suspect]
     Active Substance: EVEROLIMUS
     Indication: BREAST CANCER METASTATIC
     Dosage: 5 MG, QD
     Route: 048
     Dates: start: 20110817, end: 20111008
  10. COMPARATOR VINORELBINE [Suspect]
     Active Substance: VINORELBINE TARTRATE
     Indication: BREAST CANCER METASTATIC
     Dosage: 43 MG, QW
     Route: 042
     Dates: start: 20110817, end: 20111005
  11. NIFEDIPINE. [Concomitant]
     Active Substance: NIFEDIPINE
     Indication: HYPERTENSION
     Dosage: 30 MG, QD
     Route: 048
     Dates: start: 2000
  12. MEGACE [Concomitant]
     Active Substance: MEGESTROL ACETATE
     Dosage: 625 MG, QD
     Dates: start: 20110803
  13. BENADRYL [Concomitant]
     Active Substance: DIPHENHYDRAMINE HYDROCHLORIDE
     Dosage: UNK
     Dates: start: 20110817, end: 20111109
  14. ZOLOFT [Concomitant]
     Active Substance: SERTRALINE HYDROCHLORIDE
     Indication: DEPRESSION
     Dosage: 50 MG, QD
     Dates: start: 201006
  15. CEFRO [Concomitant]
     Indication: URINARY TRACT INFECTION
     Dosage: UNK
     Dates: start: 20110808
  16. VICODIN [Concomitant]
     Active Substance: ACETAMINOPHEN\HYDROCODONE BITARTRATE
     Indication: PAIN
     Dosage: 1 DF, PRN
     Route: 048
     Dates: start: 20110803
  17. ALOXI [Concomitant]
     Active Substance: PALONOSETRON HYDROCHLORIDE
     Dosage: UNK
     Dates: start: 20110817, end: 20111109
  18. NORMAL SALINE [Concomitant]
     Active Substance: SODIUM CHLORIDE
     Dosage: UNK
     Dates: start: 20110817, end: 20111109
  19. ZOFRAN [Concomitant]
     Active Substance: ONDANSETRON HYDROCHLORIDE
     Dosage: UNK
     Dates: start: 20110817, end: 20111112
  20. AFINITOR [Suspect]
     Active Substance: EVEROLIMUS
     Dosage: 5 MG, QD
     Route: 048
     Dates: start: 20111102
  21. COMPARATOR TRASTUZUMAB [Suspect]
     Active Substance: TRASTUZUMAB
     Dosage: 140 MG, QW
     Route: 042
     Dates: start: 20111102
  22. DECADRON [Concomitant]
     Active Substance: DEXAMETHASONE
     Dosage: UNK
     Dates: start: 20110817, end: 20111109
  23. DIFLUCAN [Concomitant]
     Active Substance: FLUCONAZOLE
     Dosage: UNK
     Dates: start: 20110921, end: 20110927
  24. NEUPOGEN [Concomitant]
     Active Substance: FILGRASTIM
     Indication: PROPHYLAXIS
     Dosage: 300 UG, PRN
     Route: 058
     Dates: start: 20110826, end: 20111007
  25. LEVOXINE [Concomitant]
     Active Substance: LEVOTHYROXINE SODIUM
     Indication: HYPOTHYROIDISM
     Dosage: 0.05 MG, QD
     Route: 048
     Dates: start: 2008
  26. VITAMIN B6 [Concomitant]
     Active Substance: PYRIDOXINE HYDROCHLORIDE
     Indication: SUPPLEMENTATION THERAPY
     Dosage: UNK
     Dates: start: 20110610

REACTIONS (1)
  - Febrile neutropenia [Recovered/Resolved]

NARRATIVE: CASE EVENT DATE: 20111008
